FAERS Safety Report 4782262-4 (Version None)
Quarter: 2005Q3

REPORT INFORMATION
  Report Type: 
  Country: None (occurrence: None)
  Receive Date: 20050914
  Receipt Date: 20040805
  Transmission Date: 20060218
  Serious: Yes (Hospitalization)
  Sender: FDA-Public Use
  Company Number: 163-20785-04080154

PATIENT
  Age: 48 Year
  Sex: Female
  Weight: 65.7716 kg

DRUGS (4)
  1. THALOMID [Suspect]
     Indication: MULTIPLE MYELOMA
     Dosage: 400 MG, QHS, ORAL
     Route: 048
     Dates: start: 20040401
  2. THALOMID [Suspect]
  3. DEXAMETHASONE [Concomitant]
  4. IMMUNE GLOBULIN G (IMMUNOGLOBULIN G HUMAN) [Concomitant]

REACTIONS (12)
  - BALANCE DISORDER [None]
  - DEPRESSION [None]
  - DIFFICULTY IN WALKING [None]
  - FALL [None]
  - HYPOAESTHESIA [None]
  - IMMUNOSUPPRESSION [None]
  - MUSCLE SPASMS [None]
  - PAIN IN EXTREMITY [None]
  - PNEUMONIA [None]
  - RASH [None]
  - TONGUE DISCOLOURATION [None]
  - WHITE BLOOD CELL COUNT DECREASED [None]
